FAERS Safety Report 15665452 (Version 1)
Quarter: 2018Q4

REPORT INFORMATION
  Report Type: Spontaneous
  Country: BY (occurrence: BY)
  Receive Date: 20181128
  Receipt Date: 20181128
  Transmission Date: 20190205
  Serious: Yes (Other)
  Sender: FDA-Public Use
  Company Number: BY-PFIZER INC-2018487000

PATIENT
  Age: 56 Year
  Sex: Male
  Weight: 65.7 kg

DRUGS (6)
  1. DELAMANID [Suspect]
     Active Substance: DELAMANID
     Indication: TUBERCULOSIS
     Dosage: UNK, 1X/DAY (200)
     Route: 048
     Dates: start: 20160908, end: 20180820
  2. PYRIDOXINE [Concomitant]
     Active Substance: PYRIDOXINE
     Dosage: UNK
     Dates: start: 20160908, end: 20180820
  3. LINEZOLID. [Suspect]
     Active Substance: LINEZOLID
     Indication: TUBERCULOSIS
     Dosage: UNK, 1X/DAY (600)
     Route: 048
     Dates: start: 20160908, end: 20180820
  4. MOXIFLOXACIN. [Suspect]
     Active Substance: MOXIFLOXACIN
     Indication: TUBERCULOSIS
     Dosage: UNK, 1X/DAY (400)
     Route: 048
     Dates: start: 20160908, end: 20180820
  5. CLOFAZIMINE [Suspect]
     Active Substance: CLOFAZIMINE
     Indication: TUBERCULOSIS
     Dosage: UNK, 1X/DAY (100)
     Route: 048
     Dates: start: 20160908, end: 20180820
  6. ESSENCIKAPS [Concomitant]
     Dosage: UNK
     Dates: start: 20161006, end: 20180820

REACTIONS (6)
  - Haemoglobin increased [Unknown]
  - Blood calcium decreased [Unknown]
  - Blood urea decreased [Unknown]
  - Alcohol abuse [Unknown]
  - Hepatitis toxic [Not Recovered/Not Resolved]
  - Platelet count decreased [Unknown]

NARRATIVE: CASE EVENT DATE: 20180205
